FAERS Safety Report 14968778 (Version 10)
Quarter: 2019Q4

REPORT INFORMATION
  Report Type: Spontaneous
  Country: US (occurrence: US)
  Receive Date: 20180604
  Receipt Date: 20191113
  Transmission Date: 20200122
  Serious: Yes (Other)
  Sender: FDA-Public Use
  Company Number: US-PFIZER INC-2018220832

PATIENT
  Age: 60 Year
  Sex: Female
  Weight: 83.46 kg

DRUGS (9)
  1. IBRANCE [Suspect]
     Active Substance: PALBOCICLIB
     Dosage: 125 MG, CYCLIC (FOR 7 DAYS AND REST FOR 7)
  2. COQ 10 [Concomitant]
     Active Substance: UBIDECARENONE
     Indication: LYMPHOEDEMA
     Dosage: UNK
     Dates: start: 2017
  3. LETROZOLE. [Concomitant]
     Active Substance: LETROZOLE
     Dosage: 2.5 MG, 1X/DAY (EVERY NIGHT)
     Route: 048
     Dates: start: 20180101
  4. IBRANCE [Suspect]
     Active Substance: PALBOCICLIB
     Indication: BREAST CANCER METASTATIC
     Dosage: 125 MG, CYCLIC (FOR 21 DAYS AND OFF FOR 7 DAYS)
     Route: 048
     Dates: start: 201801, end: 2018
  5. VITAMIN B COMPLEX [Concomitant]
     Active Substance: CYANOCOBALAMIN\DEXPANTHENOL\NIACINAMIDE\PYRIDOXINE HYDROCHLORIDE\RIBOFLAVIN 5^-PHOSPHATE SODIUM\THIAMINE HYDROCHLORIDE\VITAMIN B COMPLEX
     Indication: VITAMIN SUPPLEMENTATION
     Dosage: 1 DF, UNK
     Dates: start: 2002
  6. LETROZOLE. [Concomitant]
     Active Substance: LETROZOLE
     Indication: BREAST CANCER METASTATIC
     Dosage: UNK
     Dates: start: 2017
  7. LOSARTAN POTASSIUM. [Concomitant]
     Active Substance: LOSARTAN POTASSIUM
     Dosage: 50 MG, UNK
     Dates: start: 2016
  8. IBRANCE [Suspect]
     Active Substance: PALBOCICLIB
     Dosage: 125 MG, DAILY
     Route: 048
     Dates: start: 20180501
  9. BREO ELLIPTA [Concomitant]
     Active Substance: FLUTICASONE FUROATE\VILANTEROL TRIFENATATE
     Indication: LUNG DISORDER
     Dosage: UNK
     Route: 045
     Dates: start: 2017

REACTIONS (8)
  - Mouth haemorrhage [Recovered/Resolved]
  - Haemoptysis [Unknown]
  - Vision blurred [Unknown]
  - Renal failure [Unknown]
  - Weight decreased [Unknown]
  - Tooth disorder [Recovered/Resolved]
  - Peripheral swelling [Not Recovered/Not Resolved]
  - Breath odour [Unknown]

NARRATIVE: CASE EVENT DATE: 2017
